FAERS Safety Report 5166485-0 (Version None)
Quarter: 2006Q4

REPORT INFORMATION
  Report Type: 
  Country: None (occurrence: None)
  Receive Date: 20061207
  Receipt Date: 20061124
  Transmission Date: 20070319
  Serious: Yes (Hospitalization)
  Sender: FDA-Public Use
  Company Number: PHRM2006FR03145

PATIENT
  Age: 75 Year
  Sex: Male

DRUGS (9)
  1. TRIATEC [Concomitant]
     Dosage: 2.5 MG, QD
     Route: 048
  2. METFORMIN HCL [Concomitant]
     Dosage: 850 MG, TID
     Route: 048
  3. DIAMICRON [Concomitant]
     Dosage: 80 MG, TID
     Route: 048
  4. ACARBOSE [Concomitant]
     Dosage: 100 MG, TID
     Route: 048
  5. TADENAN [Concomitant]
     Dosage: 50 MG, BID
     Route: 048
  6. DIFFU K [Concomitant]
     Dosage: 1 DF, TID
     Route: 048
  7. EFFERALGAN [Concomitant]
     Dosage: 1 DF, TID
     Route: 048
  8. OGAST [Concomitant]
     Route: 048
     Dates: start: 20061007
  9. VOLTAREN [Suspect]
     Indication: FRACTURE
     Dosage: 50 MG, BID
     Route: 048
     Dates: start: 20061007

REACTIONS (20)
  - ABDOMINAL DISTENSION [None]
  - ABDOMINAL PAIN UPPER [None]
  - ANAEMIA [None]
  - ASCITES [None]
  - CHOLECYSTITIS [None]
  - COAGULATION FACTOR V LEVEL DECREASED [None]
  - CONDITION AGGRAVATED [None]
  - CYANOSIS [None]
  - DYSPNOEA [None]
  - HAEMATEMESIS [None]
  - HEPATIC FAILURE [None]
  - HIATUS HERNIA [None]
  - HYPERHIDROSIS [None]
  - MALAISE [None]
  - MELAENA [None]
  - METABOLIC ACIDOSIS [None]
  - OESOPHAGEAL ULCER [None]
  - OESOPHAGITIS [None]
  - PRODUCTIVE COUGH [None]
  - PROTHROMBIN TIME RATIO DECREASED [None]
